FAERS Safety Report 8190579-9 (Version None)
Quarter: 2012Q1

REPORT INFORMATION
  Report Type: 
  Country: None (occurrence: None)
  Receive Date: 20120307
  Receipt Date: 20120229
  Transmission Date: 20120608
  Serious: No
  Sender: FDA-Public Use
  Company Number: US-BAYER-2012-021329

PATIENT
  Age: 65 Year
  Sex: Female
  Weight: 77 kg

DRUGS (5)
  1. CALCIUM D [Concomitant]
  2. FOLIC ACID [Concomitant]
  3. ASPIRIN [Concomitant]
  4. ZOCOR [Concomitant]
  5. ALEVE (CAPLET) [Suspect]
     Dosage: 1 UNIT OTHER FREQUENCY
     Route: 048
     Dates: start: 20120223, end: 20120224

REACTIONS (4)
  - NAUSEA [None]
  - THIRST [None]
  - DECREASED APPETITE [None]
  - DIZZINESS [None]
